FAERS Safety Report 5684663-9 (Version None)
Quarter: 2008Q1

REPORT INFORMATION
  Report Type: 
  Country: None (occurrence: None)
  Receive Date: 20080328
  Receipt Date: 20070510
  Transmission Date: 20080703
  Serious: No
  Sender: FDA-Public Use
  Company Number: US-BRISTOL-MYERS SQUIBB COMPANY-13774815

PATIENT
  Age: 36 Year
  Sex: Male

DRUGS (1)
  1. ERBITUX [Suspect]
     Indication: COLON CANCER RECURRENT
     Dates: start: 20060201, end: 20060801

REACTIONS (2)
  - ASTEATOSIS [None]
  - DERMATITIS ACNEIFORM [None]
